FAERS Safety Report 24392642 (Version 1)
Quarter: 2024Q4

REPORT INFORMATION
  Report Type: Report from Study
  Country: RS (occurrence: RS)
  Receive Date: 20241003
  Receipt Date: 20241003
  Transmission Date: 20250115
  Serious: Yes (Hospitalization)
  Sender: TEVA
  Company Number: RS-TEVA-VS-3249681

PATIENT
  Age: 70 Year
  Sex: Female
  Weight: 96 kg

DRUGS (14)
  1. DOXORUBICIN [Suspect]
     Active Substance: DOXORUBICIN
     Indication: Diffuse large B-cell lymphoma
     Dosage: FREQUENCY: ONCE; LAST DOSE PRIOR TO ONSET OF THE EVENT WAS ON 2022-12-01
     Route: 065
     Dates: start: 20220810
  2. NADROPARIN [Concomitant]
     Active Substance: NADROPARIN
     Indication: Thrombosis prophylaxis
     Route: 058
     Dates: start: 20220809
  3. ALLOPURINOL [Concomitant]
     Active Substance: ALLOPURINOL
     Indication: Prophylaxis
     Route: 048
     Dates: start: 20220809
  4. FENTANYL [Concomitant]
     Active Substance: FENTANYL
     Indication: Pain
     Route: 062
     Dates: start: 20220726
  5. RITUXIMAB [Suspect]
     Active Substance: RITUXIMAB
     Indication: Diffuse large B-cell lymphoma
     Dosage: FREQUENCY: ONCE, LAST DOSE PRIOR TO ONSET OF EVENT WAS 2022-12-01
     Route: 042
     Dates: start: 20220810
  6. CYCLOPHOSPHAMIDE [Suspect]
     Active Substance: CYCLOPHOSPHAMIDE
     Indication: Diffuse large B-cell lymphoma
     Dosage: FREQUENCY: ONCE; LAST DOSE PRIOR TO ONSET OF EVENT WAS 2022-12-01.
     Route: 042
     Dates: start: 20220810
  7. VINCRISTINE [Suspect]
     Active Substance: VINCRISTINE
     Indication: Diffuse large B-cell lymphoma
     Dosage: THE LAST DOSE PRIOR TO ONSET OF THE EVENT WAS 2022-12-01. FREQUENCY: ONCE
     Route: 042
     Dates: start: 20220810
  8. PREDNISOLONE [Suspect]
     Active Substance: PREDNISOLONE
     Indication: Diffuse large B-cell lymphoma
     Dosage: THE LAST DOSE PRIOR TO ONSET OF THE EVENT WAS 2022-12-01.
     Route: 048
     Dates: start: 20220810
  9. TAFASITAMAB [Suspect]
     Active Substance: TAFASITAMAB
     Indication: Diffuse large B-cell lymphoma
     Dosage: THE LAST DOSE PRIOR TO ONSET OF THE EVENT WAS 2022-12-08
     Route: 042
     Dates: start: 20220809, end: 20221216
  10. FUROSEMIDE [Concomitant]
     Active Substance: FUROSEMIDE
     Indication: Hypertension
     Route: 048
     Dates: start: 20220726
  11. LENALIDOMIDE [Suspect]
     Active Substance: LENALIDOMIDE
     Indication: Diffuse large B-cell lymphoma
     Dosage: THE LAST DOSE PRIOR TO ONSET OF THE EVENT WAS 2022-08-18
     Route: 048
     Dates: start: 20220809, end: 20220831
  12. PANTOPRAZOLE [Concomitant]
     Active Substance: PANTOPRAZOLE
     Indication: Gastrointestinal disorder prophylaxis
     Route: 048
     Dates: start: 20220809
  13. RAMIPRIL [Concomitant]
     Active Substance: RAMIPRIL
     Indication: Hypertension
     Route: 048
     Dates: start: 20220726
  14. BISOPROLOL [Concomitant]
     Active Substance: BISOPROLOL\BISOPROLOL FUMARATE
     Indication: Hypertension
     Route: 048
     Dates: start: 20220726

REACTIONS (1)
  - Febrile neutropenia [Recovered/Resolved]

NARRATIVE: CASE EVENT DATE: 20221216
